FAERS Safety Report 8792872 (Version 3)
Quarter: 2012Q4

REPORT INFORMATION
  Report Type: 
  Country: ES (occurrence: ES)
  Receive Date: 20120918
  Receipt Date: 20121017
  Transmission Date: 20130627
  Serious: Yes (Other)
  Sender: FDA-Public Use
  Company Number: ES-PFIZER INC-2012038055

PATIENT
  Age: 47 Year
  Sex: Female

DRUGS (4)
  1. VANDRAL [Suspect]
     Indication: ANXIETY
     Dosage: 150 mg, 1x/day
     Route: 048
  2. VENLAFAXINE [Interacting]
     Indication: DEPRESSION
  3. ABILIFY [Interacting]
     Indication: ANXIETY
     Dosage: 15 mg, 1x/day
     Route: 048
  4. ABILIFY [Interacting]
     Indication: DEPRESSION
     Dosage: 15 mg, 2x/day
     Route: 048
     Dates: start: 201112

REACTIONS (7)
  - Drug interaction [Not Recovered/Not Resolved]
  - Menopause [Not Recovered/Not Resolved]
  - Blood glucose decreased [Not Recovered/Not Resolved]
  - Blood cholesterol increased [Not Recovered/Not Resolved]
  - Vomiting [None]
  - Headache [None]
  - Myalgia [None]
